FAERS Safety Report 4621488-7 (Version None)
Quarter: 2005Q1

REPORT INFORMATION
  Report Type: 
  Country: None (occurrence: None)
  Receive Date: 20050328
  Receipt Date: 20050302
  Transmission Date: 20050727
  Serious: Yes (Hospitalization)
  Sender: FDA-Public Use
  Company Number: WAES 0503USA00877

PATIENT
  Age: 31 Year
  Sex: Male

DRUGS (8)
  1. CRIXIVAN [Suspect]
     Indication: HIV INFECTION
     Dosage: SEE IMAGE
     Route: 048
     Dates: start: 19970717, end: 20000424
  2. CRIXIVAN [Suspect]
     Indication: HIV INFECTION
     Dosage: SEE IMAGE
     Route: 048
     Dates: start: 20000425
  3. RETROVIR [Suspect]
     Indication: HIV INFECTION
     Dosage: SEE IMAGE
     Route: 048
     Dates: start: 19970617, end: 19991212
  4. RETROVIR [Suspect]
     Indication: HIV INFECTION
     Dosage: SEE IMAGE
     Route: 048
     Dates: start: 19991213
  5. EPIVIR [Suspect]
     Indication: HIV INFECTION
     Dosage: 150 MG/BID
     Route: 048
     Dates: start: 19970717
  6. NORVIR [Suspect]
     Indication: HIV INFECTION
     Dosage: 400 MG/DAILY
     Route: 048
     Dates: start: 20000425
  7. LOPEMIN [Concomitant]
  8. URSO 250 [Concomitant]

REACTIONS (2)
  - HAEMORRHAGE SUBCUTANEOUS [None]
  - MUSCLE HAEMORRHAGE [None]
